FAERS Safety Report 10616185 (Version 2)
Quarter: 2014Q4

REPORT INFORMATION
  Report Type: Spontaneous
  Country: AT (occurrence: AT)
  Receive Date: 20141201
  Receipt Date: 20141201
  Transmission Date: 20150529
  Serious: Yes (Hospitalization)
  Sender: FDA-Public Use
  Company Number: AT-SA-L/DEZOL01040

PATIENT
  Age: 32 Year
  Sex: Male

DRUGS (8)
  1. ZOLPIDEM [Suspect]
     Active Substance: ZOLPIDEM\ZOLPIDEM TARTRATE
     Indication: NERVOUSNESS
     Route: 048
  2. ZOLPIDEM [Suspect]
     Active Substance: ZOLPIDEM\ZOLPIDEM TARTRATE
     Indication: SLEEP DISORDER
     Dosage: DOSE TEXT:
     Route: 048
  3. ZOLPIDEM [Suspect]
     Active Substance: ZOLPIDEM\ZOLPIDEM TARTRATE
     Indication: SLEEP DISORDER
     Dosage: DOSE 10 TO 100 MG PER DAY.
     Route: 048
  4. ZOLPIDEM [Suspect]
     Active Substance: ZOLPIDEM\ZOLPIDEM TARTRATE
     Indication: NERVOUSNESS
     Dosage: DOSE 10 TO 100 MG PER DAY.
     Route: 048
  5. ZOLPIDEM [Suspect]
     Active Substance: ZOLPIDEM\ZOLPIDEM TARTRATE
     Indication: NERVOUSNESS
     Dosage: TOOK 150 MG SEVERAL TIMES PER DAY.
     Route: 048
  6. ZOLPIDEM [Suspect]
     Active Substance: ZOLPIDEM\ZOLPIDEM TARTRATE
     Indication: SLEEP DISORDER
     Dosage: TOOK 150 MG SEVERAL TIMES PER DAY.
     Route: 048
  7. ZOLPIDEM [Suspect]
     Active Substance: ZOLPIDEM\ZOLPIDEM TARTRATE
     Indication: SLEEP DISORDER
     Route: 048
  8. ZOLPIDEM [Suspect]
     Active Substance: ZOLPIDEM\ZOLPIDEM TARTRATE
     Indication: NERVOUSNESS
     Dosage: DOSE TEXT:
     Route: 048

REACTIONS (25)
  - Perseveration [Recovered/Resolved]
  - Intentional product misuse [Unknown]
  - Drug dependence [Unknown]
  - Dysphemia [Recovered/Resolved]
  - Balance disorder [Recovered/Resolved]
  - Tremor [Recovered/Resolved]
  - Euphoric mood [Recovered/Resolved]
  - Eyelid ptosis [Recovered/Resolved]
  - Night sweats [Recovered/Resolved]
  - Drug abuser [Unknown]
  - Agitation [Recovered/Resolved]
  - Chills [Recovered/Resolved]
  - Intentional overdose [Unknown]
  - Diplopia [Recovered/Resolved]
  - Sedation [Recovered/Resolved]
  - White blood cell count increased [Unknown]
  - Coordination abnormal [Recovered/Resolved]
  - Ataxia [Recovered/Resolved]
  - Disturbance in attention [Recovered/Resolved]
  - Apathy [Recovered/Resolved]
  - Affect lability [Recovered/Resolved]
  - Time perception altered [Recovered/Resolved]
  - Amnesia [Recovered/Resolved]
  - Drug withdrawal syndrome [Recovered/Resolved]
  - Mental status changes [Recovered/Resolved]
